FAERS Safety Report 17572636 (Version 1)
Quarter: 2020Q1

REPORT INFORMATION
  Report Type: Spontaneous
  Country: US (occurrence: US)
  Receive Date: 20200323
  Receipt Date: 20200323
  Transmission Date: 20200409
  Serious: Yes (Other)
  Sender: FDA-Public Use
  Company Number: US-HIKMA PHARMACEUTICALS USA INC.-US-H14001-20-01407

PATIENT
  Age: 3 Year
  Sex: Female

DRUGS (1)
  1. HEPARIN [Suspect]
     Active Substance: HEPARIN SODIUM
     Indication: PRODUCT USED FOR UNKNOWN INDICATION
     Route: 065

REACTIONS (4)
  - Thrombosis [Recovered/Resolved]
  - Anticoagulation drug level below therapeutic [Recovered/Resolved]
  - Heparin-induced thrombocytopenia [Recovered/Resolved]
  - Condition aggravated [Recovered/Resolved]
